FAERS Safety Report 11906800 (Version 1)
Quarter: 2016Q1

REPORT INFORMATION
  Report Type: Other
  Country: FR (occurrence: FR)
  Receive Date: 20160111
  Receipt Date: 20160111
  Transmission Date: 20160526
  Serious: Yes (Life-Threatening, Hospitalization)
  Sender: FDA-Public Use
  Company Number: FR-MYLANLABS-2015M1048010

PATIENT

DRUGS (7)
  1. RESOLUT [Suspect]
     Active Substance: METFORMIN HYDROCHLORIDE
     Indication: MYOCARDIAL INFARCTION
     Dosage: UNK
     Dates: start: 20150823
  2. KARDEGIC [Suspect]
     Active Substance: ASPIRIN LYSINE
     Indication: PRODUCT USED FOR UNKNOWN INDICATION
     Dosage: 1 DF, QD
     Route: 048
     Dates: start: 20150824
  3. EFIENT [Suspect]
     Active Substance: PRASUGREL HYDROCHLORIDE
     Indication: MYOCARDIAL INFARCTION
     Dosage: UNK
     Route: 048
     Dates: start: 20150823, end: 20150823
  4. CLOPIDOGREL MYLAN PHARMA 75 MG, COMPRIM? PELLICUL? [Suspect]
     Active Substance: CLOPIDOGREL BISULFATE
     Indication: PRODUCT USED FOR UNKNOWN INDICATION
     Dosage: 1 DF, QD
     Route: 048
     Dates: start: 20150824, end: 20150827
  5. HEPARIN [Suspect]
     Active Substance: HEPARIN SODIUM
     Indication: MYOCARDIAL INFARCTION
     Dosage: 5000 IU, UNK
     Dates: start: 20150823
  6. ASPEGIC [Suspect]
     Active Substance: ASPIRIN DL-LYSINE
     Indication: PRODUCT USED FOR UNKNOWN INDICATION
     Dosage: 250 MG, UNK
     Route: 042
     Dates: start: 20150823, end: 20150823
  7. LOVENOX [Suspect]
     Active Substance: ENOXAPARIN SODIUM
     Indication: PRODUCT USED FOR UNKNOWN INDICATION
     Dosage: 500 IU, UNK
     Route: 058
     Dates: start: 20150823

REACTIONS (3)
  - Drug ineffective [Recovered/Resolved with Sequelae]
  - Vascular stent thrombosis [None]
  - Coronary artery thrombosis [Recovered/Resolved with Sequelae]

NARRATIVE: CASE EVENT DATE: 20150827
